FAERS Safety Report 5274474-0 (Version None)
Quarter: 2007Q1

REPORT INFORMATION
  Report Type: 
  Country: None (occurrence: None)
  Receive Date: 20070323
  Receipt Date: 20070313
  Transmission Date: 20070707
  Serious: Yes (Other)
  Sender: FDA-Public Use
  Company Number: US-PFIZER INC-2007019791

PATIENT
  Sex: Female
  Weight: 99.8 kg

DRUGS (7)
  1. CHANTIX [Suspect]
     Indication: EX-SMOKER
  2. LUNESTA [Interacting]
  3. XANAX [Concomitant]
  4. AVAPRO [Concomitant]
  5. LEVOTHYROXINE SODIUM [Concomitant]
  6. DYAZIDE [Concomitant]
  7. VICODIN [Concomitant]

REACTIONS (4)
  - DRUG INTERACTION [None]
  - SLEEP TERROR [None]
  - SURGERY [None]
  - TENSION [None]
